FAERS Safety Report 9441817 (Version 1)
Quarter: 2013Q3

REPORT INFORMATION
  Report Type: Spontaneous
  Country: US (occurrence: US)
  Receive Date: 20130806
  Receipt Date: 20130806
  Transmission Date: 20140515
  Serious: No
  Sender: FDA-Public Use
  Company Number: US-PFIZER INC-2013226895

PATIENT
  Age: 53 Year
  Sex: Male

DRUGS (6)
  1. LYRICA [Suspect]
     Dosage: UNK
  2. LOTREL [Suspect]
     Dosage: UNK
  3. ADVAIR [Suspect]
     Dosage: UNK
  4. PROBENECID [Suspect]
     Dosage: UNK
  5. ALLOPURINOL [Suspect]
     Dosage: UNK
  6. ULORIC [Suspect]
     Dosage: UNK

REACTIONS (1)
  - Drug hypersensitivity [Unknown]
